FAERS Safety Report 7151700-4 (Version None)
Quarter: 2010Q4

REPORT INFORMATION
  Report Type: 
  Country: None (occurrence: None)
  Receive Date: 20101210
  Receipt Date: 20101209
  Transmission Date: 20110411
  Serious: Yes (Hospitalization)
  Sender: FDA-Public Use
  Company Number: JP-ABBOTT-10P-087-0651117-00

PATIENT
  Sex: Female
  Weight: 43 kg

DRUGS (8)
  1. HUMIRA [Suspect]
     Indication: RHEUMATOID ARTHRITIS
     Route: 058
     Dates: start: 20091106, end: 20100524
  2. HUMIRA [Suspect]
     Dates: start: 20100830
  3. BUCILLAMINE [Concomitant]
     Indication: RHEUMATOID ARTHRITIS
     Dosage: 200 MG DAILY
     Route: 048
  4. METHOTREXATE [Concomitant]
     Indication: RHEUMATOID ARTHRITIS
     Dosage: 4 MG WEEKLY
     Route: 048
  5. MISOPROSTOL [Concomitant]
     Indication: PROPHYLAXIS AGAINST GASTROINTESTINAL ULCER
     Route: 048
  6. ISONIAZID [Concomitant]
     Indication: ANTIBIOTIC PROPHYLAXIS
     Route: 048
     Dates: start: 20090130
  7. CELECOXIB [Concomitant]
     Indication: RHEUMATOID ARTHRITIS
     Dosage: 4 TAB DAILY
     Route: 048
     Dates: start: 20100412
  8. CELECOXIB [Concomitant]
     Route: 048
     Dates: start: 20100215, end: 20100411

REACTIONS (3)
  - HYPERKERATOSIS [None]
  - PURULENT DISCHARGE [None]
  - SKIN INFECTION [None]
